FAERS Safety Report 9697269 (Version 1)
Quarter: 2013Q4

REPORT INFORMATION
  Report Type: Spontaneous
  Country: US (occurrence: None)
  Receive Date: 20131119
  Receipt Date: 20131119
  Transmission Date: 20140711
  Serious: Yes (Disabling)
  Sender: FDA-Public Use
  Company Number: None

PATIENT
  Age: 30 Year
  Sex: Female
  Weight: 57.15 kg

DRUGS (1)
  1. MIRENA [Suspect]
     Indication: CONTRACEPTION
     Dates: start: 20111101, end: 201311

REACTIONS (6)
  - Alopecia [None]
  - Fatigue [None]
  - Weight increased [None]
  - Asthenia [None]
  - Goitre [None]
  - Hypothyroidism [None]
